FAERS Safety Report 14353989 (Version 2)
Quarter: 2018Q2

REPORT INFORMATION
  Report Type: Spontaneous
  Country: DE (occurrence: DE)
  Receive Date: 20180105
  Receipt Date: 20180406
  Transmission Date: 20180711
  Serious: Yes (Other)
  Sender: FDA-Public Use
  Company Number: DE-ALK-ABELLO A/S-2017AA003858

PATIENT

DRUGS (3)
  1. ACARIZAX 12 SQ-HDM [Suspect]
     Active Substance: DERMATOPHAGOIDES FARINAE\DERMATOPHAGOIDES PTERONYSSINUS
     Indication: MITE ALLERGY
     Dosage: 12 SQ-HDM, UNK
     Dates: start: 201707
  2. GRAZAX [Concomitant]
     Active Substance: PHLEUM PRATENSE POLLEN
     Indication: HYPERSENSITIVITY
     Dosage: 75000 SQ-T, UNK
  3. SYMBICORT 160 [Concomitant]
     Dosage: 2X2 PUFFS
     Route: 055

REACTIONS (6)
  - Dysphonia [Recovered/Resolved]
  - Swollen tongue [Recovered/Resolved]
  - Paraesthesia oral [Recovered/Resolved]
  - Sensation of foreign body [Recovered/Resolved]
  - Tongue pruritus [Recovered/Resolved]
  - Salivary gland enlargement [Recovered/Resolved]
